FAERS Safety Report 6731270-2 (Version None)
Quarter: 2010Q2

REPORT INFORMATION
  Report Type: 
  Country: None (occurrence: None)
  Receive Date: 20100517
  Receipt Date: 20100517
  Transmission Date: 20101027
  Serious: No
  Sender: FDA-Public Use
  Company Number: None

PATIENT
  Age: 34 Year
  Sex: Male
  Weight: 121.564 kg

DRUGS (1)
  1. LISINOPRIL [Suspect]
     Dosage: 20MG TWICE TABS QD PO
     Route: 048
     Dates: start: 20070213, end: 20080108

REACTIONS (1)
  - COUGH [None]
